FAERS Safety Report 13881551 (Version 1)
Quarter: 2017Q3

REPORT INFORMATION
  Report Type: Other
  Country: US (occurrence: US)
  Receive Date: 20170818
  Receipt Date: 20170818
  Transmission Date: 20171127
  Serious: Yes (Other)
  Sender: FDA-Public Use
  Company Number: US-IMPRIMIS NJOF-2024780

PATIENT
  Age: 54 Year
  Sex: Female
  Weight: 59.09 kg

DRUGS (2)
  1. TRIAMCINOLONE ACETONIDE, MOXIFLOXACIN HYDROCHLORIDE [Suspect]
     Active Substance: MOXIFLOXACIN\TRIAMCINOLONE
  2. TRIAMCINOLONE-MOXIFLOXACIN (15/1) MG/ML [Suspect]
     Active Substance: MOXIFLOXACIN\TRIAMCINOLONE

REACTIONS (1)
  - Endophthalmitis [None]
